FAERS Safety Report 13932760 (Version 2)
Quarter: 2017Q3

REPORT INFORMATION
  Report Type: Spontaneous
  Country: JP (occurrence: JP)
  Receive Date: 20170904
  Receipt Date: 20170919
  Transmission Date: 20171127
  Serious: Yes (Death)
  Sender: FDA-Public Use
  Company Number: JP-JNJFOC-20170901407

PATIENT
  Age: 10 Decade
  Sex: Female

DRUGS (2)
  1. REMINYL [Suspect]
     Active Substance: GALANTAMINE
     Indication: DEMENTIA
     Route: 048
     Dates: start: 20170626, end: 20170731
  2. ABILIFY [Concomitant]
     Active Substance: ARIPIPRAZOLE
     Indication: DEMENTIA
     Route: 048
     Dates: start: 20170710, end: 20170712

REACTIONS (2)
  - Decreased appetite [Fatal]
  - Marasmus [Fatal]
